FAERS Safety Report 10062236 (Version 4)
Quarter: 2014Q2

REPORT INFORMATION
  Report Type: Spontaneous
  Country: JP (occurrence: JP)
  Receive Date: 20140407
  Receipt Date: 20140611
  Transmission Date: 20141212
  Serious: Yes (Other)
  Sender: FDA-Public Use
  Company Number: JP-PFIZER INC-2014095614

PATIENT
  Age: 67 Year
  Sex: Male

DRUGS (7)
  1. LYRICA [Suspect]
     Indication: BACK PAIN
     Dosage: 75 MG, 2X/DAY
     Route: 048
     Dates: start: 201402, end: 20140326
  2. ADALAT CR [Concomitant]
     Indication: HYPERTENSION
     Dosage: 50 MG, DAILY
     Dates: start: 201103
  3. ACECOL [Concomitant]
     Indication: HYPERTENSION
     Dosage: 2 MG, DAILY
     Dates: start: 201103
  4. PREDONINE [Concomitant]
     Dosage: UNK
  5. URIEF [Concomitant]
     Dosage: UNK
  6. TAKEPRON [Concomitant]
     Dosage: UNK
  7. NEUROTROPIN [Concomitant]
     Dosage: UNK

REACTIONS (4)
  - Ventricular extrasystoles [Recovering/Resolving]
  - Palpitations [Unknown]
  - Dyspnoea [Unknown]
  - Cardiac failure [Unknown]
